FAERS Safety Report 20578678 (Version 1)
Quarter: 2022Q1

REPORT INFORMATION
  Report Type: Spontaneous
  Country: US (occurrence: US)
  Receive Date: 20220310
  Receipt Date: 20220310
  Transmission Date: 20220423
  Serious: No
  Sender: FDA-Public Use
  Company Number: US-JNJFOC-20220307451

PATIENT
  Age: 67 Year
  Sex: Female
  Weight: 77.11 kg

DRUGS (7)
  1. MOTRIN IB [Suspect]
     Active Substance: IBUPROFEN
     Indication: Arthralgia
     Route: 065
  2. MOTRIN IB [Suspect]
     Active Substance: IBUPROFEN
     Indication: Arthralgia
  3. COVID-19 VACCINE [Concomitant]
     Indication: Product used for unknown indication
     Route: 065
     Dates: start: 20211122
  4. VITAMIN D3 [Concomitant]
     Active Substance: CHOLECALCIFEROL
     Indication: Product used for unknown indication
     Dosage: 2000 IU, TWO BY MOUTH ONCE A DAY. CALLER CLARIFIED THIS EQUALS TO A TOTAL OF 4000 IU IN A DAY
     Route: 048
  5. CALCIUM [Concomitant]
     Active Substance: CALCIUM
     Indication: Product used for unknown indication
     Dosage: 1200 MG, ONCE A DAY, BY MOUTH
     Route: 048
  6. TYLENOL [Concomitant]
     Active Substance: ACETAMINOPHEN
     Indication: Pain
     Dosage: TOOK TWO 500 MG
     Route: 065
  7. PREDNISONE [Concomitant]
     Active Substance: PREDNISONE
     Indication: Pain
     Route: 065

REACTIONS (3)
  - Incorrect dose administered [Unknown]
  - Inappropriate schedule of product administration [Unknown]
  - Off label use [Unknown]
